FAERS Safety Report 23760970 (Version 1)
Quarter: 2024Q2

REPORT INFORMATION
  Report Type: Other
  Country: MY (occurrence: None)
  Receive Date: 20240419
  Receipt Date: 20240419
  Transmission Date: 20240716
  Serious: Yes (Death, Hospitalization)
  Sender: FDA-Public Use
  Company Number: MY-ROCHE-3545410

PATIENT

DRUGS (1)
  1. POLIVY [Suspect]
     Active Substance: POLATUZUMAB VEDOTIN-PIIQ
     Indication: Product used for unknown indication
     Route: 065

REACTIONS (3)
  - Death [Fatal]
  - Electrolyte imbalance [Unknown]
  - Asthenia [Unknown]
